FAERS Safety Report 17480728 (Version 2)
Quarter: 2022Q4

REPORT INFORMATION
  Report Type: Report from Study
  Country: AR (occurrence: AR)
  Receive Date: 20200301
  Receipt Date: 20221129
  Transmission Date: 20230113
  Serious: Yes (Other)
  Sender: FDA-Public Use
  Company Number: AR-ABBVIE-20K-007-3299161-00

PATIENT
  Age: 57 Year
  Sex: Female

DRUGS (1)
  1. HUMIRA [Suspect]
     Active Substance: ADALIMUMAB
     Indication: Rheumatoid arthritis
     Dosage: 40MG
     Route: 058
     Dates: start: 20180701

REACTIONS (8)
  - Carotid artery occlusion [Unknown]
  - Cerebral infarction [Unknown]
  - Pain in extremity [Not Recovered/Not Resolved]
  - Cerebral infarction [Not Recovered/Not Resolved]
  - Headache [Not Recovered/Not Resolved]
  - Coccydynia [Not Recovered/Not Resolved]
  - Dizziness [Unknown]
  - Carotid artery occlusion [Not Recovered/Not Resolved]

NARRATIVE: CASE EVENT DATE: 20200101
